FAERS Safety Report 6543376-1 (Version None)
Quarter: 2010Q1

REPORT INFORMATION
  Report Type: 
  Country: None (occurrence: None)
  Receive Date: 20100120
  Receipt Date: 20100108
  Transmission Date: 20100710
  Serious: Yes (Hospitalization)
  Sender: FDA-Public Use
  Company Number: US-ROCHE-678758

PATIENT
  Sex: Male
  Weight: 99.7 kg

DRUGS (11)
  1. BEVACIZUMAB [Suspect]
     Dosage: DOSE: 10 MG/KG
     Route: 042
     Dates: start: 20090814, end: 20091207
  2. OXALIPLATIN [Suspect]
     Dosage: DOSE: 85 MG/M2
     Route: 042
     Dates: start: 20090814, end: 20091207
  3. LEUCOVORIN CALCIUM [Suspect]
     Dosage: DOSE: 400 MG/M2
     Route: 042
     Dates: start: 20090814, end: 20091207
  4. 5-FLUOROURACIL [Suspect]
     Dosage: DOSE: 400 MG/M2
     Route: 042
  5. 5-FLUOROURACIL [Suspect]
     Dosage: DRUG NAME: FLUORURIL 2400M/M2, FREQUENCY: 46 HR Q 14 DAY.
     Route: 042
  6. NEXIUM [Concomitant]
     Route: 048
  7. NAPROSYN [Concomitant]
     Route: 048
  8. EMLA [Concomitant]
     Route: 061
  9. LORAZEPAM [Concomitant]
     Route: 048
  10. AMBIEN [Concomitant]
     Dosage: DOSE: 5 MG PO HS PRN SLEEP
     Route: 048
  11. KYTRIL [Concomitant]
     Dosage: AS NECESSARY.
     Route: 048

REACTIONS (5)
  - BLOOD POTASSIUM INCREASED [None]
  - BLOOD SODIUM DECREASED [None]
  - DISEASE PROGRESSION [None]
  - GASTROINTESTINAL PAIN [None]
  - HYPERTENSION [None]
